FAERS Safety Report 16775640 (Version 1)
Quarter: 2019Q4

REPORT INFORMATION
  Report Type: Spontaneous
  Country: US (occurrence: US)
  Receive Date: 20190905
  Receipt Date: 20190905
  Transmission Date: 20200122
  Serious: Yes (Hospitalization)
  Sender: FDA-Public Use
  Company Number: None

PATIENT
  Age: 31 Year
  Sex: Female
  Weight: 101.7 kg

DRUGS (1)
  1. ABILIFY [Suspect]
     Active Substance: ARIPIPRAZOLE
     Indication: BIPOLAR DISORDER
     Dosage: ?          OTHER FREQUENCY:30 DAY;?
     Route: 030
     Dates: start: 20190802, end: 20190809

REACTIONS (4)
  - Drug ineffective [None]
  - Paraesthesia oral [None]
  - Restless legs syndrome [None]
  - Paraesthesia [None]

NARRATIVE: CASE EVENT DATE: 20190905
